FAERS Safety Report 8482289 (Version 2)
Quarter: 2012Q4

REPORT INFORMATION
  Report Type: 
  Country: VE (occurrence: VE)
  Receive Date: 20120329
  Receipt Date: 20121022
  Transmission Date: 20130627
  Serious: Yes (Other)
  Sender: FDA-Public Use
  Company Number: PHHY2012VE026404

PATIENT
  Sex: Male

DRUGS (1)
  1. GILENYA [Suspect]
     Indication: MULTIPLE SCLEROSIS
     Dosage: 0.5 mg, QD
     Route: 048
     Dates: start: 20111213

REACTIONS (6)
  - Colon adenoma [Unknown]
  - Prostate cancer [Unknown]
  - Urinary tract disorder [Unknown]
  - Asthenia [Unknown]
  - Weight decreased [Unknown]
  - Vomiting [Unknown]
